FAERS Safety Report 19460759 (Version 1)
Quarter: 2021Q2

REPORT INFORMATION
  Report Type: Spontaneous
  Country: US (occurrence: US)
  Receive Date: 20210625
  Receipt Date: 20210625
  Transmission Date: 20210717
  Serious: No
  Sender: FDA-Public Use
  Company Number: US-MACLEODS PHARMACEUTICALS US LTD-MAC2021031645

PATIENT

DRUGS (2)
  1. CANDESARTAN 4 MG [Suspect]
     Active Substance: CANDESARTAN
     Indication: HYPERTENSION
     Dosage: 1 DOSAGE FORM, QD, AT BEDTIME
     Route: 065
     Dates: start: 20210604
  2. METOPROLOL SUCCINATE. [Concomitant]
     Active Substance: METOPROLOL SUCCINATE
     Indication: HYPERTENSION
     Dosage: 25 MILLIGRAM, QD, IN MORNING
     Route: 065
     Dates: start: 20210604

REACTIONS (7)
  - Head discomfort [Unknown]
  - Rhinorrhoea [Unknown]
  - Ear pain [Unknown]
  - Ear congestion [Unknown]
  - Pruritus [Unknown]
  - Nasal congestion [Unknown]
  - Sneezing [Unknown]
